FAERS Safety Report 8976526 (Version 1)
Quarter: 2012Q4

REPORT INFORMATION
  Report Type: 
  Country: US (occurrence: US)
  Receive Date: 20121219
  Receipt Date: 20121219
  Transmission Date: 20130627
  Serious: No
  Sender: FDA-Public Use
  Company Number: US-AMGEN-USASP2012061365

PATIENT
  Sex: Male

DRUGS (2)
  1. XGEVA [Suspect]
     Indication: PRODUCT USED FOR UNKNOWN INDICATION
     Dosage: 120 mg, q4wk
     Route: 042
  2. JEVTANA [Concomitant]
     Dosage: UNK

REACTIONS (2)
  - Incorrect route of drug administration [Unknown]
  - Blood test abnormal [Unknown]
